FAERS Safety Report 7931230-X (Version None)
Quarter: 2011Q4

REPORT INFORMATION
  Report Type: 
  Country: None (occurrence: None)
  Receive Date: 20111118
  Receipt Date: 20111118
  Transmission Date: 20120403
  Serious: Yes (Hospitalization, Disabling)
  Sender: FDA-Public Use
  Company Number: None

PATIENT
  Age: 64 Year
  Sex: Female
  Weight: 61.2356 kg

DRUGS (2)
  1. ACTONEL [Suspect]
  2. FOSAMAX [Suspect]
     Indication: OSTEOPOROSIS
     Dosage: 70 MG 1/WK MOUTH
     Route: 048
     Dates: start: 19980914

REACTIONS (4)
  - FALL [None]
  - FEMUR FRACTURE [None]
  - CRUSH INJURY [None]
  - TIBIA FRACTURE [None]
